FAERS Safety Report 6118294-3 (Version None)
Quarter: 2009Q1

REPORT INFORMATION
  Report Type: 
  Country: None (occurrence: None)
  Receive Date: 20090314
  Receipt Date: 20090212
  Transmission Date: 20090719
  Serious: No
  Sender: FDA-Public Use
  Company Number: US-ABBOTT-09P-163-0557417-00

PATIENT
  Sex: Female
  Weight: 77.18 kg

DRUGS (5)
  1. HUMIRA [Suspect]
     Indication: RHEUMATOID ARTHRITIS
     Route: 058
     Dates: start: 20040101, end: 20060101
  2. HUMIRA [Suspect]
     Route: 058
     Dates: start: 20060101
  3. HUMIRA [Suspect]
  4. IBUPROFEN [Concomitant]
     Indication: RHEUMATOID ARTHRITIS
  5. SYNTHROID [Concomitant]
     Indication: HYPOTHYROIDISM

REACTIONS (3)
  - COUGH [None]
  - LOWER RESPIRATORY TRACT INFECTION [None]
  - RHEUMATOID ARTHRITIS [None]
